FAERS Safety Report 21653637 (Version 2)
Quarter: 2022Q4

REPORT INFORMATION
  Report Type: Other
  Country: FR (occurrence: FR)
  Receive Date: 20221129
  Receipt Date: 20221205
  Transmission Date: 20230113
  Serious: Yes (Death)
  Sender: FDA-Public Use
  Company Number: None

PATIENT
  Age: 77 Year
  Sex: Male

DRUGS (3)
  1. ELIGARD [Suspect]
     Active Substance: LEUPROLIDE ACETATE
     Indication: Prostate cancer
     Dosage: 22.5 MILLIGRAM
     Route: 058
     Dates: start: 20221001, end: 20221001
  2. SILODOSIN [Suspect]
     Active Substance: SILODOSIN
     Indication: Benign prostatic hyperplasia
     Dosage: 1 DOSAGE FORM
     Route: 048
     Dates: start: 20220930, end: 20221103
  3. ERLEADA [Suspect]
     Active Substance: APALUTAMIDE
     Indication: Metastatic neoplasm
     Dosage: 60MG*4/J
     Route: 048
     Dates: start: 20221001, end: 20221103

REACTIONS (2)
  - Toxic epidermal necrolysis [Fatal]
  - Circulatory collapse [Fatal]

NARRATIVE: CASE EVENT DATE: 20221025
